FAERS Safety Report 14072839 (Version 1)
Quarter: 2017Q4

REPORT INFORMATION
  Report Type: Spontaneous
  Country: US (occurrence: US)
  Receive Date: 20171010
  Receipt Date: 20171010
  Transmission Date: 20180321
  Serious: No
  Sender: FDA-Public Use
  Company Number: US-JNJFOC-20170707870

PATIENT
  Age: 55 Year
  Sex: Female
  Weight: 55.34 kg

DRUGS (4)
  1. KLONOPIN [Concomitant]
     Active Substance: CLONAZEPAM
     Indication: ANXIETY
     Route: 065
  2. TYLENOL PM EXTRA STRENGTH [Suspect]
     Active Substance: ACETAMINOPHEN\DIPHENHYDRAMINE HYDROCHLORIDE
     Indication: SLEEP DISORDER THERAPY
     Dosage: 4 DIFFERENT TIMES
     Route: 048
     Dates: start: 20170709, end: 20170710
  3. TYLENOL PM EXTRA STRENGTH [Suspect]
     Active Substance: ACETAMINOPHEN\DIPHENHYDRAMINE HYDROCHLORIDE
     Indication: MIGRAINE
     Dosage: 4 DIFFERENT TIMES
     Route: 048
     Dates: start: 20170709, end: 20170710
  4. TYLENOL EXTRA STRENGTH [Suspect]
     Active Substance: ACETAMINOPHEN
     Indication: MIGRAINE
     Dosage: 5 DIFFERENT TIMES
     Route: 048
     Dates: start: 20170709, end: 20170710

REACTIONS (2)
  - Drug administration error [Unknown]
  - Overdose [Unknown]

NARRATIVE: CASE EVENT DATE: 20170709
